FAERS Safety Report 9653173 (Version 1)
Quarter: 2013Q4

REPORT INFORMATION
  Report Type: Spontaneous
  Country: US (occurrence: US)
  Receive Date: 20131029
  Receipt Date: 20131029
  Transmission Date: 20140711
  Serious: Yes (Hospitalization)
  Sender: FDA-Public Use
  Company Number: US-PFIZER INC-2013307588

PATIENT
  Age: 87 Year
  Sex: Male
  Weight: 68.03 kg

DRUGS (5)
  1. MORPHINE SULFATE [Suspect]
     Indication: BACK PAIN
     Dosage: UNK
  2. MORPHINE SULFATE [Suspect]
     Indication: SPINAL COMPRESSION FRACTURE
  3. PERCOCET [Suspect]
     Indication: BACK PAIN
     Dosage: UNK
  4. PERCOCET [Suspect]
     Indication: SPINAL COMPRESSION FRACTURE
  5. OMEPRAZOLE [Concomitant]
     Indication: GASTROINTESTINAL DISORDER
     Dosage: UNK

REACTIONS (4)
  - Convulsion [Unknown]
  - Cholelithiasis [Unknown]
  - Neuropathy peripheral [Unknown]
  - Drug ineffective [Unknown]
